FAERS Safety Report 18905257 (Version 2)
Quarter: 2021Q2

REPORT INFORMATION
  Report Type: Spontaneous
  Country: FR (occurrence: FR)
  Receive Date: 20210217
  Receipt Date: 20210618
  Transmission Date: 20210717
  Serious: Yes (Death, Other)
  Sender: FDA-Public Use
  Company Number: FR-ASTRAZENECA-2021A045032

PATIENT
  Age: 70 Year
  Sex: Female
  Weight: 54 kg

DRUGS (10)
  1. TRIMEBUTINE [Suspect]
     Active Substance: TRIMEBUTINE
     Indication: PRODUCT USED FOR UNKNOWN INDICATION
     Dosage: INCONNUE
     Route: 048
  2. ONDANSETRON [Suspect]
     Active Substance: ONDANSETRON
     Indication: PROPHYLAXIS OF NAUSEA AND VOMITING
     Dosage: 8.0MG EVERY CYCLE
     Route: 048
     Dates: start: 20201006, end: 20201216
  3. PRIMPERAN [Suspect]
     Active Substance: METOCLOPRAMIDE HYDROCHLORIDE
     Indication: NAUSEA
     Dosage: 150.0MG EVERY CYCLE
     Route: 048
     Dates: start: 20201006, end: 20201221
  4. CAELYX [Suspect]
     Active Substance: DOXORUBICIN HYDROCHLORIDE
     Indication: BREAST CANCER
     Dosage: 56.0MG EVERY CYCLE
     Route: 042
     Dates: start: 20201006, end: 20201216
  5. ALPRAZOLAM. [Suspect]
     Active Substance: ALPRAZOLAM
     Indication: ANXIETY
     Dosage: INCONNUE
     Route: 048
  6. EMEND [Suspect]
     Active Substance: APREPITANT
     Indication: PROPHYLAXIS OF NAUSEA AND VOMITING
     Dosage: 1.0DF EVERY CYCLE
     Route: 048
     Dates: start: 20201006, end: 20201216
  7. ESOMEPRAZOLE. [Suspect]
     Active Substance: ESOMEPRAZOLE MAGNESIUM
     Indication: GASTRITIS
     Dosage: INCONNUE
     Route: 048
  8. EMEND [Suspect]
     Active Substance: APREPITANT
     Indication: PROPHYLAXIS OF NAUSEA AND VOMITING
     Dosage: 160.0MG EVERY CYCLE
     Route: 048
     Dates: start: 20201007, end: 20201219
  9. ZARZIO [Suspect]
     Active Substance: FILGRASTIM
     Indication: NEUTROPENIA
     Dosage: 4.0DF EVERY CYCLE
     Route: 058
     Dates: start: 20201010, end: 20201223
  10. PREDNISOLONE. [Suspect]
     Active Substance: PREDNISOLONE
     Indication: PROPHYLAXIS OF NAUSEA AND VOMITING
     Dosage: 40.0MG EVERY CYCLE
     Route: 048
     Dates: start: 20201006, end: 20201216

REACTIONS (1)
  - Interstitial lung disease [Not Recovered/Not Resolved]

NARRATIVE: CASE EVENT DATE: 20210113
